FAERS Safety Report 15594276 (Version 3)
Quarter: 2019Q1

REPORT INFORMATION
  Report Type: Spontaneous
  Country: FR (occurrence: FR)
  Receive Date: 20181107
  Receipt Date: 20190109
  Transmission Date: 20190417
  Serious: Yes (Other)
  Sender: FDA-Public Use
  Company Number: FR-PFIZER INC-2018449416

PATIENT
  Age: 65 Year
  Sex: Male

DRUGS (4)
  1. SUTENT [Suspect]
     Active Substance: SUNITINIB MALATE
     Dosage: 37.5 MG, UNK
  2. SUTENT [Suspect]
     Active Substance: SUNITINIB MALATE
     Indication: METASTATIC RENAL CELL CARCINOMA
     Dosage: 50 MG, CYCLIC (4 WEEKS ON, 2 WEEKS OFF)
     Dates: start: 20170320
  3. TAVANIC [Concomitant]
     Active Substance: LEVOFLOXACIN
  4. AUGMENTIN [Suspect]
     Active Substance: AMOXICILLIN\CLAVULANATE POTASSIUM
     Indication: PYREXIA
     Dosage: UNK
     Dates: start: 201704

REACTIONS (25)
  - Infection [Unknown]
  - Blood potassium increased [Unknown]
  - Skin fissures [Unknown]
  - Weight decreased [Unknown]
  - Nausea [Unknown]
  - Arthralgia [Unknown]
  - Xerosis [Recovering/Resolving]
  - Skin discolouration [Unknown]
  - Dry mouth [Unknown]
  - Dysgeusia [Unknown]
  - Decreased appetite [Unknown]
  - Palmar-plantar erythrodysaesthesia syndrome [Not Recovered/Not Resolved]
  - Tooth abscess [Unknown]
  - Diarrhoea [Unknown]
  - Hyperkeratosis [Unknown]
  - Neoplasm progression [Unknown]
  - Jaundice [Recovered/Resolved]
  - Dyspnoea [Unknown]
  - Fatigue [Unknown]
  - Asthenia [Unknown]
  - Pyrexia [Recovered/Resolved]
  - Mucosal inflammation [Unknown]
  - Tooth infection [Unknown]
  - Hypertension [Recovered/Resolved]
  - Skin irritation [Unknown]

NARRATIVE: CASE EVENT DATE: 20170331
